FAERS Safety Report 19093572 (Version 5)
Quarter: 2021Q4

REPORT INFORMATION
  Report Type: Report from Study
  Country: US (occurrence: US)
  Receive Date: 20210405
  Receipt Date: 20211217
  Transmission Date: 20220303
  Serious: Yes (Other)
  Sender: FDA-Public Use
  Company Number: US-TAKEDA-US202021948

PATIENT
  Age: 61 Year
  Sex: Female
  Weight: 84 kg

DRUGS (4)
  1. LANADELUMAB [Suspect]
     Active Substance: LANADELUMAB
     Indication: Hereditary angioedema
     Dosage: UNK
     Route: 065
  2. METHOTREXATE [Concomitant]
     Active Substance: METHOTREXATE
     Indication: Immune system disorder
     Dosage: 2.5 MILLIGRAM
     Route: 048
     Dates: start: 201910, end: 2020
  3. RUCONEST [Concomitant]
     Active Substance: HUMAN C1-ESTERASE INHIBITOR
     Indication: Hereditary angioedema
     Dosage: 4200 UNK
     Route: 058
     Dates: start: 20200205, end: 20200205
  4. DICLOFENAC [Concomitant]
     Active Substance: DICLOFENAC
     Indication: Systemic lupus erythematosus
     Dosage: UNK
     Route: 061
     Dates: start: 20200612

REACTIONS (5)
  - Systemic lupus erythematosus [Not Recovered/Not Resolved]
  - COVID-19 [Recovered/Resolved]
  - Tooth infection [Recovered/Resolved]
  - Hereditary angioedema [Recovered/Resolved]
  - Arthritis [Not Recovered/Not Resolved]

NARRATIVE: CASE EVENT DATE: 20200201
